FAERS Safety Report 5351718-8 (Version None)
Quarter: 2007Q2

REPORT INFORMATION
  Report Type: 
  Country: None (occurrence: None)
  Receive Date: 20070521
  Receipt Date: 20070221
  Transmission Date: 20071010
  Serious: No
  Sender: FDA-Public Use
  Company Number: WAES 0702USA03978

PATIENT
  Age: 60 Year
  Sex: Female

DRUGS (6)
  1. JANUVIA [Suspect]
     Indication: DIABETES MELLITUS
     Dosage: PO
     Route: 048
  2. ACTOS [Concomitant]
  3. OXYCONTIN [Concomitant]
  4. DIURETIC (UNSPECIFIED) [Concomitant]
  5. METFORMIN [Concomitant]
  6. STATIN (UNSPECIFIED) [Concomitant]

REACTIONS (2)
  - OEDEMA [None]
  - WEIGHT INCREASED [None]
